FAERS Safety Report 10066615 (Version 1)
Quarter: 2014Q2

REPORT INFORMATION
  Report Type: Report from Study
  Country: US (occurrence: US)
  Receive Date: 20140408
  Receipt Date: 20140408
  Transmission Date: 20141212
  Serious: No
  Sender: FDA-Public Use
  Company Number: PHEH2014US006665

PATIENT
  Sex: Male

DRUGS (7)
  1. TASIGNA [Suspect]
     Indication: CHRONIC MYELOID LEUKAEMIA
     Dosage: 150 MG, BID
     Route: 048
     Dates: start: 20131011
  2. ASPIRIN [Concomitant]
     Dosage: UNK UKN, UNK
  3. MIRTAZAPINE [Concomitant]
     Dosage: UNK UKN, UNK
  4. ZOLPIDEM TARTRATE [Concomitant]
     Dosage: UNK UKN, UNK
  5. METOPROLOL SUCCINATE [Concomitant]
     Dosage: UNK UKN, UNK
  6. DEXAMETHASONE [Concomitant]
     Dosage: UNK UKN, UNK
  7. CENTRUM SILVER [Concomitant]
     Dosage: UNK UKN, UNK

REACTIONS (3)
  - Dry eye [Not Recovered/Not Resolved]
  - Fatigue [Not Recovered/Not Resolved]
  - Rhinorrhoea [Not Recovered/Not Resolved]
